FAERS Safety Report 9380541 (Version 1)
Quarter: 2013Q3

REPORT INFORMATION
  Report Type: Spontaneous
  Country: IT (occurrence: IT)
  Receive Date: 20130702
  Receipt Date: 20130702
  Transmission Date: 20140515
  Serious: Yes (Other)
  Sender: FDA-Public Use
  Company Number: IT-WATSON-2013-11940

PATIENT
  Age: 60 Year
  Sex: Male

DRUGS (4)
  1. MIRTAZAPINE (UNKNOWN) [Suspect]
     Indication: DEPRESSIVE SYMPTOM
     Dosage: 30 MG, DAILY, AT BEDTIME
     Route: 065
  2. MIRTAZAPINE (UNKNOWN) [Suspect]
     Indication: INSOMNIA
  3. VALPROATE [Concomitant]
     Indication: BIPOLAR I DISORDER
     Dosage: 900 MG, DAILY
     Route: 065
  4. VALPROATE [Concomitant]
     Indication: IMPULSE-CONTROL DISORDER

REACTIONS (2)
  - Restless legs syndrome [Recovering/Resolving]
  - Condition aggravated [Recovering/Resolving]
